FAERS Safety Report 4682136-3 (Version None)
Quarter: 2005Q2

REPORT INFORMATION
  Report Type: 
  Country: None (occurrence: None)
  Receive Date: 20050602
  Receipt Date: 20040520
  Transmission Date: 20051028
  Serious: No
  Sender: FDA-Public Use
  Company Number: 0407-157

PATIENT
  Sex: Female

DRUGS (1)
  1. DUONEB [Suspect]

REACTIONS (4)
  - CHEST DISCOMFORT [None]
  - CHEST PAIN [None]
  - MUSCLE SPASMS [None]
  - PHARYNGOLARYNGEAL PAIN [None]
